FAERS Safety Report 9682148 (Version 4)
Quarter: 2014Q1

REPORT INFORMATION
  Report Type: Report from Study
  Country: FR (occurrence: FR)
  Receive Date: 20131111
  Receipt Date: 20140206
  Transmission Date: 20141002
  Serious: Yes (Death, Hospitalization)
  Sender: FDA-Public Use
  Company Number: FR-ROCHE-1297799

PATIENT
  Sex: Male
  Weight: 69 kg

DRUGS (8)
  1. VISMODEGIB [Suspect]
     Indication: BASAL CELL CARCINOMA
     Route: 048
     Dates: start: 20130604
  2. STAGID [Concomitant]
     Indication: TYPE 2 DIABETES MELLITUS
  3. APROVEL [Concomitant]
     Indication: HYPERTENSION
     Route: 065
  4. FUROSEMIDE [Concomitant]
     Indication: HYPERTENSION
     Route: 065
  5. NORSET [Concomitant]
     Indication: DEPRESSION
  6. LERCANIDIPINE [Concomitant]
     Indication: HYPERTENSION
  7. DAFALGAN [Concomitant]
     Indication: PAIN
  8. VOLTARENE [Concomitant]
     Indication: PAIN

REACTIONS (1)
  - General physical health deterioration [Fatal]
